FAERS Safety Report 7601943-8 (Version None)
Quarter: 2011Q3

REPORT INFORMATION
  Report Type: 
  Country: None (occurrence: None)
  Receive Date: 20110711
  Receipt Date: 20110704
  Transmission Date: 20111222
  Serious: Yes (Hospitalization, Other)
  Sender: FDA-Public Use
  Company Number: US-TEVA-289223USA

PATIENT
  Age: 63 Year
  Sex: Male

DRUGS (1)
  1. VALPROIC ACID [Suspect]
     Indication: BIPOLAR DISORDER
     Dosage: 1000 MILLIGRAM;

REACTIONS (2)
  - HOMICIDAL IDEATION [None]
  - ADRENAL INSUFFICIENCY [None]
